FAERS Safety Report 8060100-4 (Version None)
Quarter: 2012Q1

REPORT INFORMATION
  Report Type: 
  Country: None (occurrence: None)
  Receive Date: 20120112
  Receipt Date: 20120109
  Transmission Date: 20120608
  Serious: Yes (Hospitalization, Other)
  Sender: FDA-Public Use
  Company Number: ACO_28218_2011

PATIENT
  Age: 60 Year
  Sex: Male

DRUGS (7)
  1. TYSABRI [Concomitant]
  2. RAPAFLO (SILODOSIN) [Concomitant]
  3. TIZANIDINE HCL [Concomitant]
  4. EXPECTORANTS (EXPECTORANTS) [Concomitant]
  5. LEXAPRO [Concomitant]
  6. AMPYRA [Suspect]
     Indication: GAIT DISTURBANCE
     Dates: start: 20100301
  7. ALEVE [Concomitant]

REACTIONS (2)
  - MOUTH HAEMORRHAGE [None]
  - CONVULSION [None]
